FAERS Safety Report 4392736-6 (Version None)
Quarter: 2004Q3

REPORT INFORMATION
  Report Type: 
  Country: None (occurrence: None)
  Receive Date: 20040702
  Receipt Date: 20040324
  Transmission Date: 20050211
  Serious: Yes (Other)
  Sender: FDA-Public Use
  Company Number: 2004UW05797

PATIENT
  Age: 47 Year
  Sex: Female
  Weight: 59.8748 kg

DRUGS (7)
  1. CRESTOR [Suspect]
     Indication: BLOOD CHOLESTEROL
     Dosage: 10 MG QD PO
     Route: 048
     Dates: start: 20040331
  2. SYNTHROID [Concomitant]
  3. LIPITOR [Concomitant]
  4. XANAX [Concomitant]
  5. DEMEROL [Concomitant]
  6. LEXAPRO [Concomitant]
  7. DITROPAN XL [Concomitant]

REACTIONS (4)
  - COUGH [None]
  - EAR PAIN [None]
  - INSOMNIA [None]
  - PHARYNGOLARYNGEAL PAIN [None]
